FAERS Safety Report 21174746 (Version 1)
Quarter: 2022Q3

REPORT INFORMATION
  Report Type: Report from Study
  Country: BR (occurrence: BR)
  Receive Date: 20220805
  Receipt Date: 20220805
  Transmission Date: 20221027
  Serious: Yes (Other)
  Sender: FDA-Public Use
  Company Number: BR-ABBVIE-22K-020-4351584-00

PATIENT
  Age: 61 Year
  Sex: Female
  Weight: 61 kg

DRUGS (2)
  1. RINVOQ [Suspect]
     Active Substance: UPADACITINIB
     Indication: Rheumatoid arthritis
     Route: 048
     Dates: start: 20210612, end: 202201
  2. RINVOQ [Suspect]
     Active Substance: UPADACITINIB
     Route: 048
     Dates: start: 202201

REACTIONS (7)
  - Cataract [Not Recovered/Not Resolved]
  - Fluid intake reduced [Recovered/Resolved]
  - Hypophagia [Recovered/Resolved]
  - Influenza [Recovered/Resolved]
  - Influenza [Recovering/Resolving]
  - Cough [Not Recovered/Not Resolved]
  - Cough [Recovered/Resolved]

NARRATIVE: CASE EVENT DATE: 20220101
